FAERS Safety Report 9580522 (Version 1)
Quarter: 2013Q4

REPORT INFORMATION
  Report Type: Spontaneous
  Country: US (occurrence: None)
  Receive Date: 20131002
  Receipt Date: 20131002
  Transmission Date: 20140711
  Serious: Yes (Disabling)
  Sender: FDA-Public Use
  Company Number: None

PATIENT
  Sex: Male

DRUGS (2)
  1. KETOROLAC [Suspect]
     Indication: PAIN
     Dates: start: 20130601
  2. KETOROLAC [Suspect]
     Indication: THERAPEUTIC PROCEDURE
     Dates: start: 20130601

REACTIONS (3)
  - Hypoaesthesia [None]
  - Anorectal disorder [None]
  - Multi-organ disorder [None]
